FAERS Safety Report 8602057-0 (Version None)
Quarter: 2012Q3

REPORT INFORMATION
  Report Type: 
  Country: None (occurrence: None)
  Receive Date: 20120817
  Receipt Date: 20120808
  Transmission Date: 20120928
  Serious: Yes (Other)
  Sender: FDA-Public Use
  Company Number: US-JNJFOC-20120805180

PATIENT
  Sex: Female
  Weight: 58.29 kg

DRUGS (14)
  1. FENTANYL-100 [Suspect]
     Indication: ENDOCARDITIS
     Route: 062
     Dates: start: 20111001
  2. FENTANYL-100 [Suspect]
     Route: 062
     Dates: start: 20111001
  3. PENICILLIN [Concomitant]
     Indication: ENDOCARDITIS
     Route: 048
     Dates: start: 20060101
  4. ARMODAFINIL [Concomitant]
     Indication: FUNGAL INFECTION
     Route: 048
     Dates: start: 20110601
  5. DILTIAZEM [Concomitant]
     Indication: SUPRAVENTRICULAR TACHYCARDIA
     Route: 048
     Dates: start: 20100701
  6. ASPIRIN [Concomitant]
     Indication: CARDIAC DISORDER
     Dosage: 1-2 EVERY 6 HOURS AS NEEDED
     Route: 048
  7. PERCOCET [Concomitant]
     Indication: BREAKTHROUGH PAIN
     Dosage: 1-2 EVERY 6 HOURS AS NEEDED
     Route: 048
     Dates: start: 20110701
  8. FENTANYL-100 [Suspect]
     Route: 062
     Dates: start: 20110901, end: 20111001
  9. POTASSIUM [Concomitant]
     Indication: BLOOD POTASSIUM DECREASED
     Dosage: AS NEEDED
     Route: 048
  10. FENTANYL-100 [Suspect]
     Route: 062
     Dates: start: 20110901, end: 20111001
  11. FENTANYL-100 [Suspect]
     Indication: FUNGAL INFECTION
     Route: 062
     Dates: start: 20111001
  12. FENTANYL-100 [Suspect]
     Indication: CANCER PAIN
     Route: 062
     Dates: start: 20110901, end: 20111001
  13. VALIUM [Concomitant]
     Indication: ANXIETY
     Route: 048
  14. PHENERGAN HCL [Concomitant]
     Indication: NAUSEA
     Route: 048

REACTIONS (11)
  - PARAESTHESIA [None]
  - PRURITUS GENERALISED [None]
  - PRODUCT QUALITY ISSUE [None]
  - MALAISE [None]
  - VOMITING [None]
  - DRUG EFFECT DECREASED [None]
  - VIRAL INFECTION [None]
  - DRUG INEFFECTIVE [None]
  - HEAT EXHAUSTION [None]
  - DEHYDRATION [None]
  - GASTRIC DISORDER [None]
